FAERS Safety Report 9456271 (Version 1)
Quarter: 2013Q3

REPORT INFORMATION
  Report Type: Report from Study
  Country: US (occurrence: US)
  Receive Date: 20130813
  Receipt Date: 20130813
  Transmission Date: 20140515
  Serious: Yes (Hospitalization)
  Sender: FDA-Public Use
  Company Number: US-ACTELION-A-NJ2013-87144

PATIENT
  Age: 47 Year
  Sex: Male

DRUGS (1)
  1. VENTAVIS [Suspect]
     Indication: COR PULMONALE CHRONIC
     Dosage: UNK
     Route: 055

REACTIONS (2)
  - Mouth haemorrhage [Unknown]
  - Malaise [Unknown]
